FAERS Safety Report 23817560 (Version 1)
Quarter: 2024Q2

REPORT INFORMATION
  Report Type: Spontaneous
  Country: US (occurrence: US)
  Receive Date: 20240505
  Receipt Date: 20240505
  Transmission Date: 20240715
  Serious: Yes (Other)
  Sender: FDA-Public Use
  Company Number: US-JNJFOC-20240477127

PATIENT
  Age: 23 Year
  Sex: Female
  Weight: 78 kg

DRUGS (6)
  1. INVEGA SUSTENNA [Suspect]
     Active Substance: PALIPERIDONE PALMITATE
     Indication: Major depression
     Route: 030
     Dates: start: 202309
  2. INVEGA SUSTENNA [Suspect]
     Active Substance: PALIPERIDONE PALMITATE
     Route: 030
     Dates: start: 20240214
  3. INVEGA SUSTENNA [Suspect]
     Active Substance: PALIPERIDONE PALMITATE
     Route: 030
     Dates: start: 20240326
  4. INVEGA SUSTENNA [Suspect]
     Active Substance: PALIPERIDONE PALMITATE
     Route: 030
     Dates: start: 20240422
  5. RISPERIDONE [Suspect]
     Active Substance: RISPERIDONE
     Indication: Hallucination
     Route: 048
     Dates: start: 20240326
  6. CITALOPRAM [Concomitant]
     Active Substance: CITALOPRAM\CITALOPRAM HYDROBROMIDE
     Route: 048

REACTIONS (10)
  - Hallucination, visual [Unknown]
  - Hallucination [Unknown]
  - Injection site pain [Unknown]
  - Injection site erythema [Unknown]
  - Blood prolactin increased [Unknown]
  - Amenorrhoea [Unknown]
  - Drug ineffective [Unknown]
  - Off label use [Unknown]
  - Product administration error [Unknown]
  - Product complaint [Unknown]

NARRATIVE: CASE EVENT DATE: 20240422
